FAERS Safety Report 5140660-3 (Version None)
Quarter: 2006Q4

REPORT INFORMATION
  Report Type: 
  Country: None (occurrence: None)
  Receive Date: 20061031
  Receipt Date: 20040721
  Transmission Date: 20070319
  Serious: Yes (Life-Threatening, Hospitalization)
  Sender: FDA-Public Use
  Company Number: FR-BOEHRINGER INGELHEIM PHARMACEUTICALS, INC.-2004-FF-00441FF

PATIENT
  Sex: Male

DRUGS (6)
  1. VIRAMUNE [Suspect]
     Indication: HIV INFECTION
     Route: 048
     Dates: start: 20040302, end: 20040309
  2. VIRAMUNE [Suspect]
     Route: 048
     Dates: start: 20040310, end: 20040318
  3. ORBENIN CAP [Concomitant]
     Indication: INFECTION
     Route: 048
     Dates: start: 20040310, end: 20040315
  4. VALIUM [Concomitant]
     Route: 048
  5. COMBIVIR [Concomitant]
     Indication: HIV INFECTION
     Route: 048
     Dates: start: 19960201, end: 20040319
  6. DEPAKOTE [Concomitant]
     Route: 048
     Dates: start: 20040226, end: 20040319

REACTIONS (10)
  - DEPRESSION [None]
  - KERATITIS [None]
  - KERATOCONJUNCTIVITIS SICCA [None]
  - PHIMOSIS [None]
  - PHOTOPHOBIA [None]
  - RHABDOMYOLYSIS [None]
  - SCAR [None]
  - SKIN DISCOLOURATION [None]
  - SKIN HYPERTROPHY [None]
  - TOXIC EPIDERMAL NECROLYSIS [None]
